FAERS Safety Report 4644056-X (Version None)
Quarter: 2005Q2

REPORT INFORMATION
  Report Type: 
  Country: None (occurrence: None)
  Receive Date: 20050425
  Receipt Date: 20050301
  Transmission Date: 20051028
  Serious: Yes (Hospitalization)
  Sender: FDA-Public Use
  Company Number: JP-ROCHE-397637

PATIENT
  Age: 4 Year
  Sex: Male

DRUGS (3)
  1. TAMIFLU [Suspect]
     Indication: INFLUENZA
     Route: 048
     Dates: start: 20050225, end: 20050225
  2. TAMIFLU [Suspect]
     Route: 048
     Dates: start: 20050226, end: 20050301
  3. TAMIFLU [Suspect]
     Route: 048
     Dates: start: 20050302, end: 20050302

REACTIONS (4)
  - BONE MARROW DEPRESSION [None]
  - EPISTAXIS [None]
  - PANCYTOPENIA [None]
  - PLATELET COUNT DECREASED [None]
